FAERS Safety Report 5852181-0 (Version None)
Quarter: 2008Q3

REPORT INFORMATION
  Report Type: 
  Country: None (occurrence: None)
  Receive Date: 20080821
  Receipt Date: 20030430
  Transmission Date: 20090109
  Serious: Yes (Other)
  Sender: FDA-Public Use
  Company Number: US-BAYER-200830622NA

PATIENT

DRUGS (4)
  1. AVELOX [Suspect]
     Route: 048
     Dates: start: 20030101
  2. CLARITIN-D [Concomitant]
     Route: 065
  3. NASONEX [Concomitant]
     Route: 065
  4. PREVPAC [Concomitant]
     Route: 065
     Dates: end: 20030401

REACTIONS (2)
  - PALPITATIONS [None]
  - POLLAKIURIA [None]
